FAERS Safety Report 17931359 (Version 2)
Quarter: 2020Q3

REPORT INFORMATION
  Report Type: Spontaneous
  Country: DE (occurrence: DE)
  Receive Date: 20200623
  Receipt Date: 20200707
  Transmission Date: 20201103
  Serious: Yes (Other)
  Sender: FDA-Public Use
  Company Number: DE-ALLERGAN-2024021US

PATIENT
  Sex: Female

DRUGS (2)
  1. TIMOLOL UNK [Suspect]
     Active Substance: TIMOLOL
     Indication: INTRAOCULAR PRESSURE TEST
     Dosage: UNK
     Route: 047
  2. ULTRALAN PRO [Concomitant]
     Indication: ASTHMA
     Dosage: BETWEEN 15 AND 20 MG
     Route: 048

REACTIONS (2)
  - Obstructive airways disorder [Unknown]
  - Contraindicated product administered [Unknown]
